FAERS Safety Report 24776381 (Version 2)
Quarter: 2025Q4

REPORT INFORMATION
  Report Type: Report from Study
  Country: US (occurrence: None)
  Receive Date: 20241226
  Receipt Date: 20251226
  Transmission Date: 20260117
  Serious: Yes (Other)
  Sender: UCB
  Company Number: US-UCBSA-2024067101

PATIENT

DRUGS (11)
  1. BIMEKIZUMAB [Suspect]
     Active Substance: BIMEKIZUMAB
     Indication: Psoriasis
     Dosage: 320 MILLIGRAM, EV 4 WEEKS
  2. BIMEKIZUMAB [Suspect]
     Active Substance: BIMEKIZUMAB
     Indication: Psoriatic arthropathy
     Dosage: 320 MILLIGRAM, EV 8 WEEKS
  3. CALCIUM CITRATE [Concomitant]
     Active Substance: CALCIUM CITRATE
     Indication: Product used for unknown indication
     Dosage: POWDER AS DIRECTED
  4. METOPROLOL SUCCINATE [Concomitant]
     Active Substance: METOPROLOL SUCCINATE
     Indication: Product used for unknown indication
     Dosage: 25 MILLIGRAM, 2X/DAY (BID)
     Route: 061
  5. CRESTOR [Concomitant]
     Active Substance: ROSUVASTATIN CALCIUM
     Indication: Product used for unknown indication
     Dosage: 5 MILLIGRAM, ONCE DAILY (QD)
     Route: 061
  6. TADALAFIL [Concomitant]
     Active Substance: TADALAFIL
     Indication: Product used for unknown indication
     Dosage: 5 MILLIGRAM, ONCE DAILY (QD)
     Route: 061
  7. ESOMEPRAZOLE MAGNESIUM [Concomitant]
     Active Substance: ESOMEPRAZOLE MAGNESIUM
     Indication: Product used for unknown indication
     Dosage: 20 MILLIGRAM, ONCE DAILY (QD)
     Route: 061
  8. SERTRALINE HYDROCHLORIDE [Concomitant]
     Active Substance: SERTRALINE HYDROCHLORIDE
     Indication: Product used for unknown indication
     Dosage: 25 MILLIGRAM, ONCE DAILY (QD)
     Route: 061
  9. DUTASTERIDE [Concomitant]
     Active Substance: DUTASTERIDE
     Indication: Product used for unknown indication
     Dosage: 0.5 MILLIGRAM, ONCE DAILY (QD)
     Route: 061
  10. ALPRAZOLAM [Concomitant]
     Active Substance: ALPRAZOLAM
     Indication: Anxiety
     Dosage: 0.25 MILLIGRAM, 3X/DAY (TID)
     Route: 061
  11. PREDNISONE [Concomitant]
     Active Substance: PREDNISONE
     Indication: Polymyalgia rheumatica
     Dosage: 30 MILLIGRAM/DAY
     Route: 061

REACTIONS (8)
  - Cardiac disorder [Unknown]
  - Cardiac operation [Unknown]
  - Polymyalgia rheumatica [Unknown]
  - Red blood cell sedimentation rate increased [Unknown]
  - Antibody test abnormal [Unknown]
  - Imaging procedure abnormal [Unknown]
  - Osteoporosis [Unknown]
  - Intentional dose omission [Unknown]
